FAERS Safety Report 16548866 (Version 1)
Quarter: 2019Q3

REPORT INFORMATION
  Report Type: Spontaneous
  Country: US (occurrence: US)
  Receive Date: 20190709
  Receipt Date: 20190709
  Transmission Date: 20191004
  Serious: No
  Sender: FDA-Public Use
  Company Number: US-JNJFOC-20190709306

PATIENT
  Sex: Male
  Weight: 93.07 kg

DRUGS (1)
  1. MENS ROGAINE EXTRA STRENGTH [Suspect]
     Active Substance: MINOXIDIL
     Indication: ALOPECIA
     Dosage: DROPPER
     Route: 061
     Dates: start: 20190614

REACTIONS (1)
  - Pruritus [Recovered/Resolved]
